FAERS Safety Report 10176564 (Version 1)
Quarter: 2014Q2

REPORT INFORMATION
  Report Type: Spontaneous
  Country: IT (occurrence: None)
  Receive Date: 20140514
  Receipt Date: 20140514
  Transmission Date: 20141212
  Serious: Yes (Other)
  Sender: FDA-Public Use
  Company Number: AUR-APL-2014-05532

PATIENT
  Age: 52 Year
  Sex: Female

DRUGS (1)
  1. IRBESARTAN\\HYDRCHLOROTHIAZIDE [Suspect]
     Indication: PRODUCT USED FOR UNKNOWN INDICATION
     Dosage: 12.5 MG/ 150 MG, DAILY, UNKNOWN

REACTIONS (7)
  - Purpura [None]
  - Dermatitis [None]
  - Hyperkeratosis [None]
  - Eczema [None]
  - Telangiectasia [None]
  - Leukocyte vacuolisation [None]
  - Biopsy skin abnormal [None]
